FAERS Safety Report 5731784-8 (Version None)
Quarter: 2008Q2

REPORT INFORMATION
  Report Type: 
  Country: None (occurrence: None)
  Receive Date: 20080508
  Receipt Date: 20080428
  Transmission Date: 20081010
  Serious: Yes (Other)
  Sender: FDA-Public Use
  Company Number: FR-ROCHE-561736

PATIENT
  Age: 32 Year
  Sex: Male

DRUGS (2)
  1. PEGASYS [Suspect]
     Route: 058
     Dates: start: 20050901
  2. PREDNISONE TAB [Concomitant]
     Indication: IMMUNOSUPPRESSION

REACTIONS (1)
  - KIDNEY TRANSPLANT REJECTION [None]
